FAERS Safety Report 5565168-2 (Version None)
Quarter: 2007Q4

REPORT INFORMATION
  Report Type: 
  Country: None (occurrence: None)
  Receive Date: 20071213
  Receipt Date: 20071213
  Transmission Date: 20080405
  Serious: Yes (Death)
  Sender: FDA-Public Use
  Company Number: None

PATIENT
  Age: 50 Year
  Sex: Female
  Weight: 69.4003 kg

DRUGS (3)
  1. TOPROL-XL [Suspect]
     Dosage: 25MG DAILY PO
     Route: 048
     Dates: start: 20070525, end: 20071011
  2. QUINAPRIL HCL [Concomitant]
  3. HYDROCHLOROTHIAZIDE [Concomitant]

REACTIONS (1)
  - POSTOPERATIVE THROMBOSIS [None]
